FAERS Safety Report 8307029-1 (Version None)
Quarter: 2012Q2

REPORT INFORMATION
  Report Type: 
  Country: None (occurrence: None)
  Receive Date: 20120424
  Receipt Date: 20120417
  Transmission Date: 20120825
  Serious: Yes (Other)
  Sender: FDA-Public Use
  Company Number: PHEH2009US14019

PATIENT
  Sex: Male

DRUGS (8)
  1. GLEEVEC [Suspect]
     Dosage: 400 MG, UNK
     Route: 048
     Dates: start: 20100201, end: 20100401
  2. GLEEVEC [Suspect]
     Dosage: 300 MG, QD
     Route: 048
     Dates: start: 20071113
  3. SPRYCEL [Suspect]
  4. GLEEVEC [Suspect]
     Dosage: 300 MG, QD (100 MG 3 TABLETS DAILY)
     Route: 048
     Dates: start: 20110725
  5. GLEEVEC [Suspect]
     Dosage: 300 MG, UNK
     Route: 048
     Dates: start: 20111101
  6. AMLODIPINE [Concomitant]
     Dosage: 5 MG, DAILY
     Route: 048
  7. PROPRANOLOL [Concomitant]
     Dosage: 40 MG, DAILY
     Route: 048
  8. GLEEVEC [Suspect]
     Indication: CHRONIC MYELOID LEUKAEMIA
     Dosage: 400 MG, DAILY
     Route: 048
     Dates: start: 20060901, end: 20090901

REACTIONS (9)
  - VOMITING [None]
  - DRUG EFFECT DECREASED [None]
  - MUSCLE SPASMS [None]
  - ABDOMINAL PAIN UPPER [None]
  - FLUID RETENTION [None]
  - FATIGUE [None]
  - WHITE BLOOD CELL COUNT ABNORMAL [None]
  - DIARRHOEA [None]
  - GAIT DISTURBANCE [None]
